FAERS Safety Report 17175184 (Version 1)
Quarter: 2019Q4

REPORT INFORMATION
  Report Type: Spontaneous
  Country: US (occurrence: US)
  Receive Date: 20191219
  Receipt Date: 20191219
  Transmission Date: 20200122
  Serious: Yes (Hospitalization)
  Sender: FDA-Public Use
  Company Number: US-UCBSA-116396

PATIENT
  Age: 77 Year
  Sex: Male
  Weight: 95 kg

DRUGS (10)
  1. CIMZIA [Suspect]
     Active Substance: CERTOLIZUMAB PEGOL
     Dosage: 200 MG, EV 2 WEEKS(QOW)
     Route: 058
     Dates: start: 20140224
  2. CARVEDILO [Concomitant]
     Active Substance: CARVEDILOL
     Indication: ATRIAL FIBRILLATION
     Dosage: 25 MG, ONCE DAILY (QD)
  3. PREDNISONE. [Concomitant]
     Active Substance: PREDNISONE
     Indication: INFLAMMATION
     Dosage: STRENGTH: 5 MG, 8 TABLETS A DAY FOR 2 WEEKS
     Dates: start: 201402, end: 2014
  4. CIMZIA [Suspect]
     Active Substance: CERTOLIZUMAB PEGOL
     Indication: CROHN^S DISEASE
     Dosage: 400 MG, EV 6 WEEKS
     Route: 058
     Dates: start: 20131117
  5. VIT D 3 [Concomitant]
     Dosage: UNK UNK, ONCE DAILY (QD)
  6. MOEXIPRIL [Concomitant]
     Active Substance: MOEXIPRIL HYDROCHLORIDE
     Indication: HYPERTENSION
     Dosage: 15 MG, ONCE DAILY (QD)
  7. PRADAXA [Concomitant]
     Active Substance: DABIGATRAN ETEXILATE MESYLATE
     Indication: ANTICOAGULANT THERAPY
     Dosage: 150 MG, 2X/DAY (BID)
  8. CIMZIA [Suspect]
     Active Substance: CERTOLIZUMAB PEGOL
     Dosage: 400 MG, EV 4 WEEKS
     Route: 058
     Dates: start: 201401, end: 201402
  9. IRON [Concomitant]
     Active Substance: IRON
     Indication: MINERAL SUPPLEMENTATION
     Dosage: UNK UNK, ONCE DAILY (QD)
  10. PENTASA [Concomitant]
     Active Substance: MESALAMINE
     Indication: INFLAMMATION
     Dosage: STRENGTH: 500 MG, 2 TABLETS
     Dates: start: 201402, end: 2014

REACTIONS (3)
  - Inappropriate schedule of product administration [Unknown]
  - Intestinal obstruction [Recovered/Resolved]
  - Drug ineffective [Unknown]

NARRATIVE: CASE EVENT DATE: 201311
